FAERS Safety Report 17996682 (Version 2)
Quarter: 2020Q3

REPORT INFORMATION
  Report Type: Spontaneous
  Country: AU (occurrence: AU)
  Receive Date: 20200708
  Receipt Date: 20200721
  Transmission Date: 20201103
  Serious: Yes (Hospitalization, Other)
  Sender: FDA-Public Use
  Company Number: AU-MYLANLABS-2020M1058884

PATIENT
  Age: 49 Year
  Sex: Male

DRUGS (16)
  1. CLOZARIL [Suspect]
     Active Substance: CLOZAPINE
     Indication: SCHIZOPHRENIA
     Dosage: 25 MILLIGRAM, Q2D
  2. CLOZARIL [Suspect]
     Active Substance: CLOZAPINE
     Indication: SCHIZOAFFECTIVE DISORDER
     Dosage: 100 MILLIGRAM
  3. PARACETAMOL [Concomitant]
     Active Substance: ACETAMINOPHEN
     Dosage: 1 GRAM, Q6HR
     Route: 048
  4. LITHIUM. [Concomitant]
     Active Substance: LITHIUM
     Dosage: 450 MILLIGRAM, BID
  5. ESOMEPRAZOLE. [Concomitant]
     Active Substance: ESOMEPRAZOLE MAGNESIUM
     Dosage: 20 MILLIGRAM, AM
     Route: 048
  6. OLANZAPINE. [Concomitant]
     Active Substance: OLANZAPINE
     Dosage: 5 MILLIGRAM, AM
  7. CLOPIDOGREL [Concomitant]
     Active Substance: CLOPIDOGREL BISULFATE
     Dosage: 75 MILLIGRAM, AM
  8. COLOXYL WITH SENNA [Concomitant]
     Active Substance: DOCUSATE SODIUM\SENNOSIDES A AND B
     Dosage: 2 TABS ,NOCTE
     Route: 048
  9. METFORMINE                         /00082701/ [Concomitant]
     Active Substance: METFORMIN HYDROCHLORIDE
     Dosage: 500 MILLIGRAM, BID
     Route: 048
  10. CLOZARIL [Suspect]
     Active Substance: CLOZAPINE
     Dosage: 175 MILLIGRAM
     Route: 048
     Dates: start: 20200528, end: 2020
  11. CLOZARIL [Suspect]
     Active Substance: CLOZAPINE
     Dosage: UNK
     Dates: end: 20200714
  12. OLANZAPINE. [Concomitant]
     Active Substance: OLANZAPINE
     Dosage: 10 MILLIGRAM, PM
  13. ASPIRIN                            /00002701/ [Concomitant]
     Active Substance: ASPIRIN
     Dosage: 100 MILLIGRAM, AM
  14. DIAZEPAM. [Concomitant]
     Active Substance: DIAZEPAM
     Dosage: 5?10MG MAX 30 MG
  15. OLANZAPINE. [Concomitant]
     Active Substance: OLANZAPINE
     Dosage: 5 MILLIGRAM;MIDDAY
  16. SERTRALINE [Concomitant]
     Active Substance: SERTRALINE HYDROCHLORIDE
     Dosage: 50 MILLIGRAM, AM
     Route: 048

REACTIONS (11)
  - C-reactive protein increased [Not Recovered/Not Resolved]
  - Myalgia [Unknown]
  - Eosinophilia [Unknown]
  - Salivary hypersecretion [Unknown]
  - Myocarditis [Unknown]
  - Psychotic symptom [Unknown]
  - Troponin increased [Recovering/Resolving]
  - Hospitalisation [Unknown]
  - Tremor [Unknown]
  - Body temperature increased [Unknown]
  - Tachycardia [Unknown]

NARRATIVE: CASE EVENT DATE: 2020
